FAERS Safety Report 10726569 (Version 1)
Quarter: 2015Q1

REPORT INFORMATION
  Report Type: Spontaneous
  Country: US (occurrence: US)
  Receive Date: 20150121
  Receipt Date: 20150121
  Transmission Date: 20150721
  Serious: Yes (Death, Hospitalization)
  Sender: FDA-Public Use
  Company Number: US-BAYER-2015-005410

PATIENT
  Age: 34 Year
  Sex: Female

DRUGS (4)
  1. DIPHENHYDRAMINE HYDROCHLORIDE. [Suspect]
     Active Substance: DIPHENHYDRAMINE HYDROCHLORIDE
     Route: 048
  2. PARACETAMOL + PSEUDOEPHEDRINE + DEXTROMETHORPHAN + DOXYLAMINE [Suspect]
     Active Substance: ACETAMINOPHEN\DEXTROMETHORPHAN\DOXYLAMINE\PSEUDOEPHEDRINE
     Route: 048
  3. ACETAMINOPHEN W/PHENYLEPHRINE HYDROCHLORIDE [Suspect]
     Active Substance: ACETAMINOPHEN\PHENYLEPHRINE HYDROCHLORIDE
     Route: 048
  4. IBUPROFEN. [Suspect]
     Active Substance: IBUPROFEN
     Route: 048

REACTIONS (3)
  - Toxicity to various agents [Fatal]
  - Completed suicide [None]
  - Intentional overdose [Fatal]
